FAERS Safety Report 8245499-8 (Version None)
Quarter: 2012Q1

REPORT INFORMATION
  Report Type: 
  Country: None (occurrence: None)
  Receive Date: 20120329
  Receipt Date: 20120320
  Transmission Date: 20120608
  Serious: Yes (Other)
  Sender: FDA-Public Use
  Company Number: US-ASTRAZENECA-2012SE11566

PATIENT
  Age: 77 Year
  Sex: Male
  Weight: 99.8 kg

DRUGS (6)
  1. ZOCOR [Concomitant]
     Indication: BLOOD CHOLESTEROL ABNORMAL
  2. OTHER RESPIRATORY PRODUCTS [Concomitant]
     Dosage: TWO PUFFS IN THE MORNING
  3. SYMBICORT [Suspect]
     Dosage: 160 OVER 4.5 MG,TWO PUFFS TWO TIMES A DAY
     Route: 055
  4. ZOCOR [Concomitant]
     Indication: BLOOD PRESSURE ABNORMAL
  5. FLOMAX [Concomitant]
     Indication: BENIGN PROSTATIC HYPERPLASIA
  6. SYMBICORT [Suspect]
     Indication: CHRONIC OBSTRUCTIVE PULMONARY DISEASE
     Dosage: 160 OVER 4.5 MG BID
     Route: 055

REACTIONS (3)
  - CIRCUMSTANCE OR INFORMATION CAPABLE OF LEADING TO MEDICATION ERROR [None]
  - PROSTATOMEGALY [None]
  - DYSPNOEA [None]
